FAERS Safety Report 9008874 (Version 2)
Quarter: 2013Q1

REPORT INFORMATION
  Report Type: Spontaneous
  Country: US (occurrence: US)
  Receive Date: 20130111
  Receipt Date: 20130204
  Transmission Date: 20140127
  Serious: Yes (Hospitalization)
  Sender: FDA-Public Use
  Company Number: US-GILEAD-2013-0067736

PATIENT
  Sex: Male

DRUGS (2)
  1. LETAIRIS [Suspect]
     Indication: HYPERSOMNIA
     Dosage: 10 MG, QD
     Route: 048
     Dates: start: 20100216
  2. LETAIRIS [Suspect]
     Indication: SLEEP APNOEA SYNDROME

REACTIONS (1)
  - Pneumonia [Unknown]
